FAERS Safety Report 5634698-7 (Version None)
Quarter: 2008Q1

REPORT INFORMATION
  Report Type: 
  Country: None (occurrence: None)
  Receive Date: 20080222
  Receipt Date: 20080220
  Transmission Date: 20080703
  Serious: Yes (Life-Threatening)
  Sender: FDA-Public Use
  Company Number: JP-ASTRAZENECA-2004AP01672

PATIENT
  Age: 10080 Day
  Sex: Male
  Weight: 56 kg

DRUGS (9)
  1. OMEPRAL [Suspect]
     Indication: DUODENAL ULCER HAEMORRHAGE
     Route: 041
     Dates: start: 20040128, end: 20040201
  2. OMEPRAL [Suspect]
     Route: 048
     Dates: start: 20040201, end: 20040301
  3. OMEPRAL [Suspect]
     Route: 048
     Dates: start: 20040319, end: 20040324
  4. ALLOID G [Concomitant]
     Indication: DUODENAL ULCER HAEMORRHAGE
     Route: 048
     Dates: start: 20040126, end: 20040204
  5. MALFA [Concomitant]
     Indication: DUODENAL ULCER HAEMORRHAGE
     Route: 048
     Dates: start: 20040126, end: 20040216
  6. MYONAL [Concomitant]
     Indication: MYALGIA
     Route: 048
  7. CONCENTRATED RED BLOOD CELL TRANSFUSION [Concomitant]
     Route: 042
     Dates: start: 20040121, end: 20040121
  8. CONCENTRATED RED BLOOD CELL TRANSFUSION [Concomitant]
     Route: 042
     Dates: start: 20040126, end: 20040126
  9. CONCENTRATED RED BLOOD CELL TRANSFUSION [Concomitant]
     Route: 042
     Dates: start: 20040127, end: 20040127

REACTIONS (1)
  - HYPERKALAEMIA [None]
